FAERS Safety Report 21250358 (Version 1)
Quarter: 2022Q3

REPORT INFORMATION
  Report Type: Spontaneous
  Country: US (occurrence: None)
  Receive Date: 20220823
  Receipt Date: 20220823
  Transmission Date: 20221026
  Serious: Yes (Hospitalization)
  Sender: FDA-Public Use
  Company Number: None

PATIENT
  Age: 76 Year
  Sex: Male
  Weight: 107.5 kg

DRUGS (14)
  1. LENALIDOMIDE [Suspect]
     Active Substance: LENALIDOMIDE
     Indication: Plasma cell myeloma
     Dosage: 10MG 21D ON 7D OFF ORAL?
     Route: 048
  2. ASPIRIN [Concomitant]
     Active Substance: ASPIRIN
  3. AZITHROMYCIN [Concomitant]
     Active Substance: AZITHROMYCIN
  4. BENZONATATE [Concomitant]
     Active Substance: BENZONATATE
  5. CHERATUSSIN AC [Concomitant]
     Active Substance: CODEINE PHOSPHATE\GUAIFENESIN
  6. CICLOPIROX [Concomitant]
     Active Substance: CICLOPIROX
  7. ELIQUIS [Concomitant]
     Active Substance: APIXABAN
  8. GLUCOSAMINE [Concomitant]
     Active Substance: GLUCOSAMINE
  9. LEVOTHYROXINE [Concomitant]
     Active Substance: LEVOTHYROXINE
  10. OMEPRAZOLE [Concomitant]
     Active Substance: OMEPRAZOLE
  11. PENLAC [Concomitant]
     Active Substance: CICLOPIROX
  12. PRAVASTATIN [Concomitant]
     Active Substance: PRAVASTATIN
  13. TAMSULOSIN [Concomitant]
     Active Substance: TAMSULOSIN
  14. VITAMIN C [Concomitant]
     Active Substance: ASCORBIC ACID

REACTIONS (3)
  - Fall [None]
  - Hip fracture [None]
  - Therapy interrupted [None]
